FAERS Safety Report 7103891-9 (Version None)
Quarter: 2010Q4

REPORT INFORMATION
  Report Type: 
  Country: None (occurrence: None)
  Receive Date: 20101115
  Receipt Date: 20101108
  Transmission Date: 20110411
  Serious: Yes (Death, Hospitalization)
  Sender: FDA-Public Use
  Company Number: PHEH2009US19060

PATIENT
  Sex: Male

DRUGS (2)
  1. EXJADE [Suspect]
     Dosage: UNK
     Route: 048
  2. EXJADE [Suspect]
     Dosage: 2000 MG, QD
     Route: 048

REACTIONS (7)
  - DEATH [None]
  - EYE DISORDER [None]
  - HEARING IMPAIRED [None]
  - OEDEMA PERIPHERAL [None]
  - PYREXIA [None]
  - RASH ERYTHEMATOUS [None]
  - VASCULITIS [None]
